FAERS Safety Report 13266971 (Version 1)
Quarter: 2017Q1

REPORT INFORMATION
  Report Type: Spontaneous
  Country: FR (occurrence: FR)
  Receive Date: 20170224
  Receipt Date: 20170224
  Transmission Date: 20170428
  Serious: Yes (Death, Hospitalization, Other)
  Sender: FDA-Public Use
  Company Number: FR-BRISTOL-MYERS SQUIBB COMPANY-BMS-2017-013655

PATIENT
  Age: 84 Year
  Sex: Female

DRUGS (1)
  1. ELIQUIS [Suspect]
     Active Substance: APIXABAN
     Indication: CEREBROVASCULAR ACCIDENT PROPHYLAXIS
     Dosage: 10 MG, QD
     Route: 048
     Dates: start: 201603, end: 20170123

REACTIONS (6)
  - Death [Fatal]
  - Subarachnoid haemorrhage [Recovered/Resolved]
  - Intraventricular haemorrhage [Unknown]
  - Arteriosclerosis [Unknown]
  - Cerebral haematoma [Unknown]
  - Off label use [Unknown]

NARRATIVE: CASE EVENT DATE: 20170123
